FAERS Safety Report 25012444 (Version 1)
Quarter: 2025Q1

REPORT INFORMATION
  Report Type: Spontaneous
  Country: JP (occurrence: JP)
  Receive Date: 20250226
  Receipt Date: 20250226
  Transmission Date: 20250408
  Serious: Yes (Death, Hospitalization, Other)
  Sender: DAIICHI
  Company Number: JP-DSJP-DS-2025-126583-JPAA

PATIENT
  Age: 5 Decade
  Sex: Female

DRUGS (1)
  1. ENHERTU [Suspect]
     Active Substance: FAM-TRASTUZUMAB DERUXTECAN-NXKI
     Indication: HER2 positive breast cancer
     Dosage: 5.4 MG/KG, ONCE EVERY 3 WK
     Route: 041

REACTIONS (3)
  - Death [Fatal]
  - Seizure [Unknown]
  - Anaemia [Recovering/Resolving]
